FAERS Safety Report 5850488-4 (Version None)
Quarter: 2008Q3

REPORT INFORMATION
  Report Type: 
  Country: None (occurrence: None)
  Receive Date: 20080819
  Receipt Date: 20080807
  Transmission Date: 20090109
  Serious: Yes (Hospitalization)
  Sender: FDA-Public Use
  Company Number: US-PFIZER INC-2008066452

PATIENT
  Sex: Female

DRUGS (7)
  1. PRAZOSIN HCL [Suspect]
  2. LISINOPRIL [Suspect]
  3. VERAPAMIL HYDROCHLORIDE [Suspect]
  4. PANITUMUMAB [Suspect]
     Indication: COLORECTAL CANCER
     Dosage: DAILY DOSE:565.6MG
     Route: 042
  5. IRINOTECAN HCL [Concomitant]
  6. FLUOROURACIL [Concomitant]
  7. FOLINIC ACID [Concomitant]

REACTIONS (6)
  - BLOOD ALBUMIN DECREASED [None]
  - BLOOD GLUCOSE DECREASED [None]
  - HYPOKALAEMIA [None]
  - HYPOMAGNESAEMIA [None]
  - MENTAL DISORDER [None]
  - TREATMENT NONCOMPLIANCE [None]
